FAERS Safety Report 7671253-1 (Version None)
Quarter: 2011Q3

REPORT INFORMATION
  Report Type: 
  Country: None (occurrence: None)
  Receive Date: 20110809
  Receipt Date: 20110726
  Transmission Date: 20111222
  Serious: Yes (Hospitalization)
  Sender: FDA-Public Use
  Company Number: US-ELI_LILLY_AND_COMPANY-US201104008039

PATIENT
  Sex: Female
  Weight: 124.72 kg

DRUGS (16)
  1. PROCARDIA [Concomitant]
  2. METOPROLOL TARTRATE [Concomitant]
     Indication: CARDIAC DISORDER
  3. CELEXA [Concomitant]
  4. ARAVA [Concomitant]
  5. ZOFRAN [Concomitant]
  6. PREMARIN [Concomitant]
  7. METHOTREXATE [Concomitant]
  8. LEVOTHYROXINE SODIUM [Concomitant]
  9. FORTEO [Suspect]
     Indication: OSTEOPOROSIS
     Dosage: 20 UG, QD
     Route: 058
     Dates: start: 20100225, end: 20110408
  10. VICODIN [Concomitant]
     Dosage: UNK, PRN
  11. LYRICA [Concomitant]
  12. HUMIRA [Concomitant]
  13. TRAZODONE HCL [Concomitant]
  14. ASPIRIN [Concomitant]
     Dosage: 325 MG, QD
  15. ALLOPURINOL [Concomitant]
  16. TRAMADOL HCL [Concomitant]

REACTIONS (12)
  - LABORATORY TEST ABNORMAL [None]
  - DYSURIA [None]
  - FAECES PALE [None]
  - FATIGUE [None]
  - PLATELET COUNT ABNORMAL [None]
  - FEELING COLD [None]
  - WEIGHT DECREASED [None]
  - HEPATITIS [None]
  - CHROMATURIA [None]
  - INFLUENZA LIKE ILLNESS [None]
  - HYPOTHYROIDISM [None]
  - URINARY TRACT INFECTION [None]
